FAERS Safety Report 5279042-2 (Version None)
Quarter: 2007Q1

REPORT INFORMATION
  Report Type: 
  Country: None (occurrence: None)
  Receive Date: 20070327
  Receipt Date: 20070327
  Transmission Date: 20070707
  Serious: Yes (Hospitalization)
  Sender: FDA-Public Use
  Company Number: None

PATIENT
  Age: 66 Year
  Sex: Male
  Weight: 103.4201 kg

DRUGS (8)
  1. CISPLATIN [Suspect]
     Indication: SMALL CELL LUNG CANCER STAGE UNSPECIFIED
     Dosage: 143 MG CYCLIC IV
     Route: 042
     Dates: start: 20070227, end: 20070227
  2. ENOXAPARIN SODIUM [Concomitant]
  3. LORTAB [Concomitant]
  4. METOPROLOL SUCCINATE [Concomitant]
  5. OMEPRAZOLE [Concomitant]
  6. PROMETHAZINE [Concomitant]
  7. WARFARIN SODIUM [Concomitant]
  8. TEMAZEPAM [Concomitant]

REACTIONS (1)
  - UNEVALUABLE EVENT [None]
